FAERS Safety Report 21051919 (Version 1)
Quarter: 2022Q3

REPORT INFORMATION
  Report Type: Spontaneous
  Country: US (occurrence: None)
  Receive Date: 20220706
  Receipt Date: 20220706
  Transmission Date: 20221026
  Serious: No
  Sender: FDA-Public Use
  Company Number: None

PATIENT
  Age: 40 Year
  Sex: Female
  Weight: 62.1 kg

DRUGS (12)
  1. PAXLOVID [Suspect]
     Active Substance: NIRMATRELVIR\RITONAVIR
     Indication: COVID-19
     Route: 048
     Dates: start: 20220623, end: 20220627
  2. SERTRALINE [Concomitant]
     Active Substance: SERTRALINE HYDROCHLORIDE
  3. BUPROPION [Concomitant]
     Active Substance: BUPROPION
  4. prorpanolol [Concomitant]
  5. ALBUTEROL [Concomitant]
     Active Substance: ALBUTEROL
  6. PREDNISONE [Concomitant]
     Active Substance: PREDNISONE
  7. MUCINEX [Concomitant]
     Active Substance: GUAIFENESIN
  8. tesselon perles [Concomitant]
  9. MELATONIN [Concomitant]
     Active Substance: MELATONIN
  10. THEANINE [Concomitant]
     Active Substance: THEANINE
  11. TYLENOL [Concomitant]
     Active Substance: ACETAMINOPHEN
  12. MOTRIN [Concomitant]
     Active Substance: IBUPROFEN

REACTIONS (2)
  - COVID-19 [None]
  - SARS-CoV-2 test positive [None]

NARRATIVE: CASE EVENT DATE: 20220702
